FAERS Safety Report 12839743 (Version 3)
Quarter: 2016Q4

REPORT INFORMATION
  Report Type: Spontaneous
  Country: US (occurrence: US)
  Receive Date: 20161012
  Receipt Date: 20161206
  Transmission Date: 20170207
  Serious: No
  Sender: FDA-Public Use
  Company Number: US-PFIZER INC-2016474289

PATIENT
  Age: 87 Year
  Sex: Female

DRUGS (15)
  1. GABAPENTIN. [Concomitant]
     Active Substance: GABAPENTIN
     Dosage: 300 MG, 2X/DAY
  2. LASIX [Concomitant]
     Active Substance: FUROSEMIDE
     Dosage: 20 MG, ALTERNATE DAY (QOD)
  3. FISH OIL [Concomitant]
     Active Substance: FISH OIL
     Dosage: 1000 MG, DAILY (QD)
  4. CALCIUM [Concomitant]
     Active Substance: CALCIUM
     Dosage: 800 MG, DAILY (QD)
  5. LEVALBUTEROL. [Concomitant]
     Active Substance: LEVALBUTEROL
     Dosage: UNK UNK, AS NEEDED (QD)
  6. COLACE [Concomitant]
     Active Substance: DOCUSATE SODIUM
     Dosage: 100 MG, DAILY
  7. APAP [Concomitant]
     Active Substance: ACETAMINOPHEN
     Dosage: 500 MG, AS NEEDED (TID) (PRN)
  8. AMLODIPINE [Concomitant]
     Active Substance: AMLODIPINE BESYLATE
     Dosage: 215 MG, DAILY(QD)
  9. VITAMIN D3 [Concomitant]
     Active Substance: CHOLECALCIFEROL
     Dosage: 1000 IU, DAILY
  10. XELJANZ [Suspect]
     Active Substance: TOFACITINIB CITRATE
     Indication: RHEUMATOID ARTHRITIS
     Dosage: 10 MG, 1X/DAY
  11. XELJANZ [Suspect]
     Active Substance: TOFACITINIB CITRATE
     Dosage: 5 MG, DAILY
     Route: 048
     Dates: start: 20140218, end: 20160506
  12. XELJANZ [Suspect]
     Active Substance: TOFACITINIB CITRATE
     Indication: ARTHRITIS
     Dosage: 5 MG, UNK
  13. OXYCODONE [Concomitant]
     Active Substance: OXYCODONE
     Dosage: 25 MG, AS NEEDED (Q6D)
  14. WARFARIN [Concomitant]
     Active Substance: WARFARIN
     Dosage: 2 MG, DAILY (QD)
  15. VITAMIN B12 [Concomitant]
     Active Substance: CYANOCOBALAMIN
     Dosage: 1000 UG, DAILY (QD)

REACTIONS (3)
  - Condition aggravated [Not Recovered/Not Resolved]
  - Anaemia [Not Recovered/Not Resolved]
  - Blood iron decreased [Recovered/Resolved]

NARRATIVE: CASE EVENT DATE: 20160506
